FAERS Safety Report 5770857-0 (Version None)
Quarter: 2008Q2

REPORT INFORMATION
  Report Type: 
  Country: None (occurrence: None)
  Receive Date: 20080613
  Receipt Date: 20080521
  Transmission Date: 20081010
  Serious: No
  Sender: FDA-Public Use
  Company Number: US-ABBOTT-08P-163-0452658-00

PATIENT
  Sex: Male

DRUGS (5)
  1. HUMIRA [Suspect]
     Indication: RHEUMATOID ARTHRITIS
     Route: 058
  2. METHOTREXATE [Concomitant]
     Indication: DRUG USE FOR UNKNOWN INDICATION
  3. SERETIDE [Concomitant]
     Indication: DRUG USE FOR UNKNOWN INDICATION
  4. SALBUTAMOL SULFATE [Concomitant]
     Indication: DRUG USE FOR UNKNOWN INDICATION
  5. TRAMADOL HCL [Concomitant]
     Indication: DRUG USE FOR UNKNOWN INDICATION

REACTIONS (7)
  - ANXIETY [None]
  - HAND DEFORMITY [None]
  - JOINT SWELLING [None]
  - MUSCULOSKELETAL STIFFNESS [None]
  - PAIN [None]
  - PANIC ATTACK [None]
  - POLYP [None]
